FAERS Safety Report 6373971-4 (Version None)
Quarter: 2009Q3

REPORT INFORMATION
  Report Type: 
  Country: None (occurrence: None)
  Receive Date: 20090924
  Receipt Date: 20090910
  Transmission Date: 20100115
  Serious: Yes (Death, Hospitalization, Other)
  Sender: FDA-Public Use
  Company Number: US-ALEXION-A200900636

PATIENT
  Sex: Female

DRUGS (24)
  1. SOLIRIS [Suspect]
     Indication: PAROXYSMAL NOCTURNAL HAEMOGLOBINURIA
     Dosage: 600 MG, QW X4
     Route: 042
     Dates: start: 20071211, end: 20071231
  2. SOLIRIS [Suspect]
     Dosage: 900 MG, Q2W
     Route: 042
     Dates: start: 20080107, end: 20090403
  3. LISINOPRIL [Concomitant]
  4. CIPRO                              /00697201/ [Concomitant]
  5. MORPHINE [Concomitant]
  6. PREDNISONE [Concomitant]
  7. ALLOPURINOL [Concomitant]
  8. FOSAMAX [Concomitant]
  9. THALIDOMIDE [Concomitant]
  10. NEO-SYNEPHRINE                     /00116302/ [Concomitant]
     Dosage: UNK
     Dates: start: 20090609
  11. LEVOPHED [Concomitant]
     Dosage: UNK
     Dates: start: 20090609
  12. CARDIZEM [Concomitant]
     Dosage: UNK
     Dates: start: 20090601
  13. STEROIDS [Concomitant]
     Dosage: UNK
     Dates: start: 20090601
  14. CEFEPIME [Concomitant]
     Dosage: UNK
     Dates: start: 20090601
  15. VANCOMYCIN [Concomitant]
     Dosage: UNK
     Dates: start: 20090601
  16. AMIODARONE HCL [Concomitant]
     Dosage: UNK
     Dates: start: 20090601
  17. BICARBONATE [Concomitant]
     Dosage: UNK
     Dates: start: 20090601
  18. INSULIN [Concomitant]
     Dosage: UNK
     Dates: start: 20090601
  19. TPN [Concomitant]
     Dosage: UNK
     Dates: start: 20090612
  20. ZOSYN [Concomitant]
     Dosage: UNK
     Dates: start: 20090601
  21. FLAGYL [Concomitant]
     Dosage: UNK
     Dates: start: 20090601
  22. LACTOBACILLUS [Concomitant]
     Dosage: UNK
     Dates: start: 20090622
  23. ACTIGALL [Concomitant]
     Dosage: UNK
     Dates: start: 20090601
  24. PRIMAXIN                           /00820501/ [Suspect]
     Dosage: UNK
     Dates: start: 20090601

REACTIONS (13)
  - ABSCESS [None]
  - ATRIAL FIBRILLATION [None]
  - CLOSTRIDIAL INFECTION [None]
  - COAGULOPATHY [None]
  - DECREASED APPETITE [None]
  - DRUG INEFFECTIVE [None]
  - LEUKOCYTOSIS [None]
  - MULTI-ORGAN FAILURE [None]
  - MYOCARDIAL INFARCTION [None]
  - POST PROCEDURAL HAEMORRHAGE [None]
  - RENAL FAILURE ACUTE [None]
  - SPLENOMEGALY [None]
  - STAPHYLOCOCCAL INFECTION [None]
